FAERS Safety Report 7462990-2 (Version None)
Quarter: 2011Q2

REPORT INFORMATION
  Report Type: 
  Country: None (occurrence: None)
  Receive Date: 20110506
  Receipt Date: 20110406
  Transmission Date: 20111010
  Serious: Yes (Other)
  Sender: FDA-Public Use
  Company Number: US-BAYER-200934802NA

PATIENT
  Sex: Male
  Weight: 50.34 kg

DRUGS (12)
  1. NITROGLYCERIN [Concomitant]
     Dosage: DRIP
     Route: 042
     Dates: start: 20061205
  2. HEPARIN [Concomitant]
     Dosage: UNK
     Dates: start: 20061205
  3. VITAMIN K TAB [Concomitant]
     Dosage: UNK
     Dates: start: 20061205
  4. VASOPRESSIN [Concomitant]
     Dosage: DRIP
     Route: 042
     Dates: start: 20061205
  5. VANCOMYCIN [Concomitant]
     Dosage: 1GRAM
     Route: 042
     Dates: start: 20061205, end: 20061205
  6. INSULIN [Concomitant]
     Dosage: DRIPUNK
     Route: 042
     Dates: start: 20061205
  7. MANNITOL [Concomitant]
     Dosage: UNK
     Dates: start: 20061205
  8. TRASYLOL [Suspect]
     Indication: AORTIC VALVE REPLACEMENT
     Dosage: 200 ML LOADING DOSE THEN 50CC/HR
     Route: 042
     Dates: start: 20061205, end: 20061205
  9. DOPAMINE HCL [Concomitant]
     Dosage: DRIP
     Route: 042
     Dates: start: 20061205
  10. PROTAMINE SULFATE [Concomitant]
     Dosage: UNK
     Route: 042
     Dates: start: 20061205
  11. ALBUMIN (HUMAN) [Concomitant]
     Dosage: UNK
     Dates: start: 20061205
  12. GENTAMICIN [Concomitant]

REACTIONS (12)
  - DEPRESSION [None]
  - INJURY [None]
  - PAIN [None]
  - ANHEDONIA [None]
  - NERVOUSNESS [None]
  - MULTI-ORGAN FAILURE [None]
  - RENAL INJURY [None]
  - EMOTIONAL DISTRESS [None]
  - RENAL FAILURE [None]
  - FEAR [None]
  - FEAR OF DEATH [None]
  - ANXIETY [None]
